FAERS Safety Report 7536896-4 (Version None)
Quarter: 2011Q2

REPORT INFORMATION
  Report Type: 
  Country: None (occurrence: None)
  Receive Date: 20110609
  Receipt Date: 20110531
  Transmission Date: 20111010
  Serious: Yes (Hospitalization)
  Sender: FDA-Public Use
  Company Number: FR-ROCHE-780218

PATIENT
  Age: 59 Year
  Sex: Female

DRUGS (9)
  1. PREDNISONE [Concomitant]
  2. KEPPRA [Concomitant]
  3. NEXIUM [Concomitant]
  4. BACTRIM [Concomitant]
  5. PREVISCAN [Concomitant]
  6. TEMERIT [Concomitant]
  7. MIRCERA [Suspect]
     Dosage: STRENGTH: 100 UG/ ML
     Route: 058
     Dates: start: 20110201, end: 20110401
  8. ATORVASTATIN [Concomitant]
  9. HYDROCORTISONE [Concomitant]

REACTIONS (1)
  - LEUKOENCEPHALOPATHY [None]
